FAERS Safety Report 16595082 (Version 1)
Quarter: 2019Q3

REPORT INFORMATION
  Report Type: Spontaneous
  Country: TW (occurrence: TW)
  Receive Date: 20190718
  Receipt Date: 20190718
  Transmission Date: 20191004
  Serious: Yes (Other)
  Sender: FDA-Public Use
  Company Number: TW-AMGEN-TWNSP2019115208

PATIENT
  Age: 64 Year
  Sex: Female

DRUGS (10)
  1. ENBREL [Suspect]
     Active Substance: ETANERCEPT
     Indication: RHEUMATOID ARTHRITIS
     Dosage: 3 DF (25MG), MONTHLY
     Route: 058
     Dates: start: 20091116
  2. CARISOMA [Concomitant]
     Dosage: 250 MG (1 TABLET), 3X/DAY
  3. FLUR DI FEN [Concomitant]
     Dosage: UNK UNK, PRN
  4. KENTAMIN [Concomitant]
     Dosage: 1 DF (1 CAPSULE), 3X/DAY
  5. SALAGEN [Concomitant]
     Active Substance: PILOCARPINE HYDROCHLORIDE
     Dosage: 5 MG (1 TABLET), 2X/DAY
  6. DEPYRETIN [Concomitant]
     Active Substance: ACETAMINOPHEN
     Dosage: 500 MG (1 TABLET), 3X/DAY
  7. APROVEL [Concomitant]
     Active Substance: IRBESARTAN
     Dosage: 300 MG (1 TABLET), 1X/DAY
  8. LYRICA [Concomitant]
     Active Substance: PREGABALIN
     Dosage: 75 MG, QN
  9. PREDNISOLONE. [Concomitant]
     Active Substance: PREDNISOLONE
     Dosage: 5 MG (2 TABLETS), 1X/DAY
  10. DEFENSE [Concomitant]
     Active Substance: CIMETIDINE
     Dosage: 300 MG (1 TABLET), 3X/DAY

REACTIONS (4)
  - Fall [Unknown]
  - Product use issue [Unknown]
  - Lumbar vertebral fracture [Unknown]
  - Ligament sprain [Unknown]

NARRATIVE: CASE EVENT DATE: 20190706
